FAERS Safety Report 20771113 (Version 1)
Quarter: 2022Q2

REPORT INFORMATION
  Report Type: Spontaneous
  Country: US (occurrence: US)
  Receive Date: 20220429
  Receipt Date: 20220429
  Transmission Date: 20220721
  Serious: No
  Sender: FDA-Public Use
  Company Number: US-TEVA-2022-US-2024724

PATIENT
  Age: 91 Year
  Sex: Female

DRUGS (1)
  1. CILOSTAZOL [Suspect]
     Active Substance: CILOSTAZOL
     Indication: Nasopharyngitis
     Dosage: 200 MILLIGRAM DAILY;

REACTIONS (1)
  - Musculoskeletal stiffness [Unknown]
